FAERS Safety Report 9387201 (Version 1)
Quarter: 2013Q3

REPORT INFORMATION
  Report Type: Spontaneous
  Country: GB (occurrence: None)
  Receive Date: 20130702
  Receipt Date: 20130702
  Transmission Date: 20140515
  Serious: Yes (Other)
  Sender: FDA-Public Use
  Company Number: GER/UKI/13/0030290

PATIENT
  Age: 86 Year
  Sex: Male
  Weight: 82.5 kg

DRUGS (8)
  1. DONEPEZIL (DONEPEZIL) [Suspect]
     Indication: DEMENTIA
     Route: 048
     Dates: start: 20130603, end: 20130609
  2. ASPIRIN (ACETYLSALICYLIC ACID) [Concomitant]
     Indication: DEMENTIA
  3. DOSULEPIN (DOSULEPIN) [Concomitant]
  4. MST CONTINUS (MORPHINE SULFATE) [Concomitant]
  5. NAPROSYN (NAPROXEN) [Concomitant]
  6. SIMVASTATIN (SIMVASTATIN) [Concomitant]
  7. SODIUM VALPROATE (VALPROATE SODIUM) [Concomitant]
  8. THYROXINE( LEVOTHYROXINE SODIUM) [Concomitant]

REACTIONS (2)
  - Nightmare [None]
  - Hallucination [None]
